FAERS Safety Report 18961760 (Version 5)
Quarter: 2022Q3

REPORT INFORMATION
  Report Type: Spontaneous
  Country: US (occurrence: US)
  Receive Date: 20210302
  Receipt Date: 20220919
  Transmission Date: 20221027
  Serious: No
  Sender: FDA-Public Use
  Company Number: US-VIFOR (INTERNATIONAL) INC.-VIT-2021-01657

PATIENT
  Age: 55 Year
  Sex: Male

DRUGS (2)
  1. VELTASSA [Suspect]
     Active Substance: PATIROMER
     Indication: Hyperkalaemia
     Dosage: 5-6 MONTHS AGO DISSOLVE CONTENTS OF 1 PACKET INTO 1/3 CUP OF WATER AND DRINK FULL AMOUNT ONCE DAILY
     Route: 048
     Dates: start: 2020
  2. VELTASSA [Suspect]
     Active Substance: PATIROMER
     Dosage: 5-6 MONTHS AGO DISSOLVE CONTENTS OF 1 PACKET INTO 1/3 CUP OF WATER AND DRINK FULL AMOUNT ONCE DAILY
     Route: 048
     Dates: start: 20220617, end: 2022

REACTIONS (6)
  - Product dose omission issue [Unknown]
  - Product physical issue [Unknown]
  - Product colour issue [Unknown]
  - Ill-defined disorder [Unknown]
  - Illness [Recovered/Resolved]
  - Dialysis [Not Recovered/Not Resolved]

NARRATIVE: CASE EVENT DATE: 20210101
